FAERS Safety Report 11976191 (Version 1)
Quarter: 2016Q1

REPORT INFORMATION
  Report Type: Spontaneous
  Country: None (occurrence: None)
  Receive Date: 20160128
  Receipt Date: 20160128
  Transmission Date: 20160526
  Serious: No
  Sender: FDA-Public Use
  Company Number: None

PATIENT
  Age: 66 Year
  Sex: Female

DRUGS (1)
  1. CELECOXIB 200MG TEVA [Suspect]
     Active Substance: CELECOXIB
     Route: 048

REACTIONS (3)
  - Product substitution issue [None]
  - Diplopia [None]
  - Vision blurred [None]

NARRATIVE: CASE EVENT DATE: 20150116
